FAERS Safety Report 7525341-0 (Version None)
Quarter: 2011Q2

REPORT INFORMATION
  Report Type: 
  Country: None (occurrence: None)
  Receive Date: 20110526
  Receipt Date: 20110516
  Transmission Date: 20111010
  Serious: Yes (Life-Threatening)
  Sender: FDA-Public Use
  Company Number: 1000021067

PATIENT
  Age: 64 Year
  Sex: Male
  Weight: 100 kg

DRUGS (13)
  1. ESCITALOPRAM OXALATE [Suspect]
     Indication: DEPRESSION
     Dosage: ORAL
     Route: 048
     Dates: start: 20080101, end: 20110504
  2. ATORVASTATIN (ATORVASTATIN) (ATORVASTATIN) [Concomitant]
  3. SALBUTAMOL (SALBUTAMOL ) (SALBUTAMOL) [Concomitant]
  4. ALENDRONIC ACID (ALENDRONIC ACID) (ALENDRONIC ACID) [Concomitant]
  5. GAVISCON (GAVISCON /00237601/) (GAVISCON /00237601/) [Concomitant]
  6. OMEPRAZOLE [Concomitant]
  7. LOSARTIN (LOSARTAN POTASSIUM) (LOSARTAN POTASSIUM) [Concomitant]
  8. METHYLENE BLUE (METHYLTHIONINIUM CHLORIDE) [Suspect]
     Indication: PARATHYROIDECTOMY
  9. DIHYDROCODEINE (DIHYDROCODEINE) (DIHYDROCODEINE) [Concomitant]
  10. PARACETAMOL (PARACETAMOL) (PARACETAMOL) [Concomitant]
  11. SERETIDE (SERETIDE /01420901/) (SERETIDE /01420901/) [Concomitant]
  12. FELODIPINE (FELODIPINE) (FELODIPNE) [Concomitant]
  13. METFORMIN HCL [Concomitant]

REACTIONS (1)
  - SEROTONIN SYNDROME [None]
